FAERS Safety Report 6823587-8 (Version None)
Quarter: 2010Q3

REPORT INFORMATION
  Report Type: 
  Country: None (occurrence: None)
  Receive Date: 20100708
  Receipt Date: 20061006
  Transmission Date: 20110219
  Serious: No
  Sender: FDA-Public Use
  Company Number: US-PFIZER INC-2006099251

PATIENT
  Sex: Female
  Weight: 74.84 kg

DRUGS (3)
  1. CHANTIX [Suspect]
     Indication: EX-TOBACCO USER
     Route: 048
     Dates: start: 20060701
  2. FIORICET [Concomitant]
  3. TYLENOL [Concomitant]

REACTIONS (1)
  - DRUG INEFFECTIVE [None]
